FAERS Safety Report 4577410-5 (Version None)
Quarter: 2005Q1

REPORT INFORMATION
  Report Type: 
  Country: None (occurrence: None)
  Receive Date: 20050208
  Receipt Date: 20050131
  Transmission Date: 20050727
  Serious: Yes (Hospitalization)
  Sender: FDA-Public Use
  Company Number: FRWYE382231JAN05

PATIENT
  Age: 23 Year
  Sex: Female

DRUGS (1)
  1. LEVONORGESTREL AND ETHINYL ESTRADIOL [Suspect]
     Dosage: 1 TABLET 1X PER 1 DAY ORAL
     Route: 048
     Dates: start: 19980101, end: 20050111

REACTIONS (3)
  - EXTREMITY NECROSIS [None]
  - NECROSIS ISCHAEMIC [None]
  - PERIPHERAL OCCLUSIVE DISEASE [None]
